FAERS Safety Report 23450901 (Version 1)
Quarter: 2024Q1

REPORT INFORMATION
  Report Type: Spontaneous
  Country: FR (occurrence: FR)
  Receive Date: 20240129
  Receipt Date: 20240129
  Transmission Date: 20240410
  Serious: Yes (Hospitalization)
  Sender: FDA-Public Use
  Company Number: None

PATIENT
  Age: 81 Year
  Sex: Male
  Weight: 72.5 kg

DRUGS (1)
  1. XARELTO [Suspect]
     Active Substance: RIVAROXABAN
     Indication: Atrial fibrillation
     Dosage: 20 MG / J
     Route: 048
     Dates: start: 20231108, end: 20231120

REACTIONS (2)
  - Haematoma [Recovered/Resolved]
  - Red blood cell abnormality [Recovered/Resolved]

NARRATIVE: CASE EVENT DATE: 20231120
